FAERS Safety Report 8113590 (Version 3)
Quarter: 2013Q1

REPORT INFORMATION
  Report Type: Spontaneous
  Country: US (occurrence: None)
  Receive Date: 20110811
  Receipt Date: 20121025
  Transmission Date: 20140127
  Serious: Yes (Hospitalization)
  Sender: FDA-Public Use
  Company Number: US-2011-10543

PATIENT
  Age: 64 Year
  Sex: Female

DRUGS (25)
  1. BUSULFAN [Suspect]
     Indication: STEM CELL TRANSPLANT
     Route: 042
     Dates: start: 20110629, end: 20110629
  2. ETOPOSIDE (ETOPOSIDE) [Concomitant]
  3. CYCLOPHOSPHAMIDE (CYCLOPHOSPHAMIDE) [Concomitant]
  4. LEVOTHYROXINE (LEVOTHYROXINE SODIUM) [Concomitant]
  5. ACYCLOVIR (ACICLOVIR) (ACICLOVIR) [Concomitant]
  6. METOPROLOL (METOPROLOL TARTRATE) [Concomitant]
  7. ESOMEPRAZOLE (ESOMEPRAZOLE) [Concomitant]
  8. MAGNESIUM SULFATE (MAGNESIUM SUILFATE) [Concomitant]
  9. DIPHENHYDRAMINE (DIPHENHYDRAMINE HYDROCHLORIDE) (UNKNOWN) (DIPHENHYDRAMINE HYDROCHLORIDE) [Concomitant]
  10. POTASSIUM CHLORIDE (POTASSIUM CHLORIDE) [Concomitant]
  11. ACETAMINOPHEN (PARACETAMOL) [Concomitant]
  12. CIPROFLOXACIN (CIPROFLOXACIN) [Concomitant]
  13. FLUCONAZOLE (FLUCONAZOLE) [Concomitant]
  14. POTASSIUM PHOSPHATE (POTASSIUM PHOSPHATE DIBASIC, POTASSIUM PHOSPHATE MONOBASIC) [Concomitant]
  15. URSODIOL (URSODEOXYCHOLIC ACID) [Concomitant]
  16. PHOSPHA 250 NEUTRAL TABLET [Concomitant]
  17. SUCRALFATE (SUCRALFATE) UNKNOWN [Concomitant]
  18. LORAZEPAM (LORAZEPAM) [Concomitant]
  19. LOPERAMIDE (LOPERAMIDE HYDROCHLORIDE) [Concomitant]
  20. OXYCODONE (OXYCODONE) [Concomitant]
  21. CEFEPIME (CEFEPIME HYDROCHLORIDE) [Concomitant]
  22. VANCOMYCIN (VANCOMYCIN HYDROCHLORIDE) [Concomitant]
  23. MORPHINE (MORPHINE HYDROCHLORIDE) [Concomitant]
  24. FUROSEMIDE (FUROSEMIDE) [Concomitant]
  25. LISINOPRIL (LISINOPRIL) [Concomitant]

REACTIONS (18)
  - Cardiac failure congestive [None]
  - Condition aggravated [None]
  - Pleural effusion [None]
  - Decreased appetite [None]
  - Diarrhoea [None]
  - Thrombocytopenia [None]
  - Anaemia [None]
  - Hypothyroidism [None]
  - Cholelithiasis [None]
  - Kidney small [None]
  - Ascites [None]
  - Cardiomyopathy [None]
  - Mitral valve incompetence [None]
  - Pericardial effusion [None]
  - Cardiomegaly [None]
  - Pulmonary oedema [None]
  - Palpitations [None]
  - Fatigue [None]
